FAERS Safety Report 13892654 (Version 1)
Quarter: 2017Q3

REPORT INFORMATION
  Report Type: Spontaneous
  Country: US (occurrence: US)
  Receive Date: 20170822
  Receipt Date: 20170822
  Transmission Date: 20171127
  Serious: Yes (Other)
  Sender: FDA-Public Use
  Company Number: US-ROCHE-716155

PATIENT
  Age: 57 Year
  Sex: Female
  Weight: 79.8 kg

DRUGS (25)
  1. ACTEMRA [Suspect]
     Active Substance: TOCILIZUMAB
     Indication: RHEUMATOID ARTHRITIS
     Dosage: INFUSION
     Route: 042
  2. ACTEMRA [Suspect]
     Active Substance: TOCILIZUMAB
     Route: 042
  3. ACTEMRA [Suspect]
     Active Substance: TOCILIZUMAB
     Route: 042
  4. ZAROXOLYN [Concomitant]
     Active Substance: METOLAZONE
     Route: 048
  5. DIVALPROEX SODIUM. [Concomitant]
     Active Substance: DIVALPROEX SODIUM
     Dosage: DELAYED RELEASE, TWO TABLET IN MORNING, TWO TABLET IN EVENING
     Route: 048
  6. CLARITIN [Concomitant]
     Active Substance: LORATADINE
     Dosage: WITH EVERY TOCILIZUMAB INFUSION
     Route: 048
  7. CALCIUM [Concomitant]
     Active Substance: CALCIUM
     Dosage: DRUG REPORTED AS CALCIUM 600
     Route: 048
  8. FOSINOPRIL [Concomitant]
     Active Substance: FOSINOPRIL
     Route: 048
  9. RESTASIS [Concomitant]
     Active Substance: CYCLOSPORINE
     Indication: DRY EYE
     Dosage: 1 DROP EACH EYE
     Route: 047
  10. SIMVASTATIN. [Concomitant]
     Active Substance: SIMVASTATIN
     Route: 048
  11. POTASSIUM CHLORIDE. [Concomitant]
     Active Substance: POTASSIUM CHLORIDE
     Dosage: STRENGTH:20MEQ/15ML,LIQUID TAKEN 15ML IN 2 TO 6 OUNCES OF WATER/JUICE X 3 DAYS THEN 15 ML ONCE DAILY
     Route: 048
  12. CITALOPRAM HYDROBROMIDE. [Concomitant]
     Active Substance: CITALOPRAM HYDROBROMIDE
     Route: 048
  13. TYLENOL [Concomitant]
     Active Substance: ACETAMINOPHEN
     Dosage: WITH EVERY TOCILIZUMAB INFUSION
     Route: 048
  14. ACTEMRA [Suspect]
     Active Substance: TOCILIZUMAB
     Route: 042
  15. VISTARIL [Concomitant]
     Active Substance: HYDROXYZINE PAMOATE
     Indication: SLEEP DISORDER THERAPY
     Dosage: ONE TO TWO CAPSULES BY MOUTH AT BEDTIME AS NEEDED
     Route: 048
  16. KLOR-CON [Concomitant]
     Active Substance: POTASSIUM CHLORIDE
     Dosage: EXTENDED RELEASE, DRUG REPORTED AS KLOR-CON 10
     Route: 048
  17. VICODIN [Concomitant]
     Active Substance: ACETAMINOPHEN\HYDROCODONE BITARTRATE
     Dosage: VICODIN ES, 7.5MG/750MG TABLET,BID,AS NECESSARY
     Route: 048
  18. ACTEMRA [Suspect]
     Active Substance: TOCILIZUMAB
     Dosage: INFUSION, DOSE INCREASED
     Route: 042
  19. ASPIRIN. [Concomitant]
     Active Substance: ASPIRIN
     Dosage: ENTERIC COATED
     Route: 048
  20. GLYCOLAX [Concomitant]
     Active Substance: POLYETHYLENE GLYCOL 3350
     Dosage: GLYCOLAX POWDER FOR ORAL SOLUTION,DISSOLVE 17 MG IN 8 OUNCES OF WATER AND DRINK DAILY
     Route: 048
  21. NITROLINGUAL [Concomitant]
     Active Substance: NITROGLYCERIN
     Dosage: PUMP:AS NECESSARY
     Route: 065
  22. PROMETHAZINE HCL [Concomitant]
     Active Substance: PROMETHAZINE HYDROCHLORIDE
     Indication: NAUSEA
     Dosage: OTHER INDICATION: VOMITING, 1 TABLET AS NECESSARY
     Route: 065
  23. ZANTAC [Concomitant]
     Active Substance: RANITIDINE HYDROCHLORIDE
     Indication: ILL-DEFINED DISORDER
     Dosage: DRUG REPORTED AS ZANTAC 150, MAXIMUM STRENGTH
     Route: 065
  24. METHOTREXATE SODIUM. [Concomitant]
     Active Substance: METHOTREXATE SODIUM
     Dosage: 8 TABLETS ALL TAKEN TOGETHER AT NIGHT ONCE A WEEK,NOT TAKEN WHEN ILL OR ON ANTIBIOTICS
     Route: 048
  25. FOSAMAX [Concomitant]
     Active Substance: ALENDRONATE SODIUM
     Route: 048

REACTIONS (1)
  - Diverticulitis [Recovered/Resolved with Sequelae]

NARRATIVE: CASE EVENT DATE: 20100705
